FAERS Safety Report 8416170-4 (Version None)
Quarter: 2012Q2

REPORT INFORMATION
  Report Type: 
  Country: None (occurrence: None)
  Receive Date: 20120606
  Receipt Date: 20120524
  Transmission Date: 20120825
  Serious: Yes (Hospitalization)
  Sender: FDA-Public Use
  Company Number: FR-ROCHE-GNE278100

PATIENT
  Sex: Female
  Weight: 60 kg

DRUGS (3)
  1. CLOPIDOGREL [Concomitant]
     Indication: ACUTE MYOCARDIAL INFARCTION
     Dosage: UNK
  2. ENOXAPARIN [Concomitant]
     Indication: ACUTE MYOCARDIAL INFARCTION
     Dosage: UNK
  3. TENECTEPLASE [Suspect]
     Indication: ACUTE MYOCARDIAL INFARCTION
     Dosage: 30 MG, UNK
     Route: 040
     Dates: start: 20090203

REACTIONS (2)
  - HAEMOGLOBIN DECREASED [None]
  - VESSEL PUNCTURE SITE HAEMORRHAGE [None]
